FAERS Safety Report 4630701-1 (Version None)
Quarter: 2005Q2

REPORT INFORMATION
  Report Type: 
  Country: None (occurrence: None)
  Receive Date: 20050408
  Receipt Date: 20050118
  Transmission Date: 20051028
  Serious: Yes (Hospitalization)
  Sender: FDA-Public Use
  Company Number: US-ROCHE-392818

PATIENT
  Age: 3 Year
  Sex: Female
  Weight: 20.5 kg

DRUGS (21)
  1. DACLIZUMAB [Suspect]
     Dosage: 40 MG GIVEN ON 06 JANUARY 2005.
     Route: 042
     Dates: start: 20050106
  2. DACLIZUMAB [Suspect]
     Dosage: 20 MG GIVEN ON 03 FEBRUARY 2005.
     Route: 042
     Dates: end: 20050203
  3. MYCOPHENOLATE MOFETIL [Suspect]
     Route: 065
  4. MYCOPHENOLATE MOFETIL [Suspect]
     Route: 065
  5. PROGRAF [Suspect]
     Route: 048
  6. PROGRAF [Suspect]
     Route: 048
  7. PROGRAF [Suspect]
     Route: 048
  8. MANNITOL [Concomitant]
  9. DOPAMINE [Concomitant]
  10. MORPHINE [Concomitant]
  11. GANCICLOVIR [Concomitant]
  12. SEPTRA [Concomitant]
  13. PREVACID [Concomitant]
  14. VERSED [Concomitant]
  15. FENTANYL [Concomitant]
  16. IMODIUM [Concomitant]
  17. VALCYTE [Concomitant]
  18. LASIX [Concomitant]
     Route: 042
     Dates: end: 20050114
  19. BACTRIM [Concomitant]
  20. POLY-VI-SOL [Concomitant]
  21. KEFLEX [Concomitant]

REACTIONS (10)
  - ATHEROSCLEROSIS [None]
  - BLOOD CREATININE INCREASED [None]
  - DRUG LEVEL INCREASED [None]
  - FLUID OVERLOAD [None]
  - GRAFT COMPLICATION [None]
  - KIDNEY TRANSPLANT REJECTION [None]
  - OLIGURIA [None]
  - RENAL CYST [None]
  - UPPER RESPIRATORY TRACT INFECTION [None]
  - VIRAL UPPER RESPIRATORY TRACT INFECTION [None]
